FAERS Safety Report 4627901-3 (Version None)
Quarter: 2005Q2

REPORT INFORMATION
  Report Type: 
  Country: None (occurrence: None)
  Receive Date: 20050406
  Receipt Date: 20050325
  Transmission Date: 20051028
  Serious: Yes (Death)
  Sender: FDA-Public Use
  Company Number: JP-BRISTOL-MYERS SQUIBB COMPANY-12913398

PATIENT
  Age: 70 Year
  Sex: Male

DRUGS (4)
  1. UFT [Suspect]
     Indication: LIP AND/OR ORAL CAVITY CANCER
  2. CISPLATIN [Suspect]
     Indication: LIP AND/OR ORAL CAVITY CANCER
  3. FLUOROURACIL [Suspect]
     Indication: LIP AND/OR ORAL CAVITY CANCER
  4. RADIOTHERAPY [Suspect]
     Indication: LIP AND/OR ORAL CAVITY CANCER

REACTIONS (1)
  - REFRACTORY ANAEMIA [None]
